FAERS Safety Report 10038419 (Version 1)
Quarter: 2014Q1

REPORT INFORMATION
  Report Type: Spontaneous
  Country: US (occurrence: None)
  Receive Date: 20140306
  Receipt Date: 20140306
  Transmission Date: 20141002
  Serious: Yes (Hospitalization, Other)
  Sender: FDA-Public Use
  Company Number: 163-21880-13064351

PATIENT
  Age: 58 Year
  Sex: Female
  Weight: 81.65 kg

DRUGS (10)
  1. REVLIMID (LENALIDOMIDE) (CAPSULES) [Suspect]
     Indication: PLASMA CELL MYELOMA
     Route: 048
     Dates: start: 20130405
  2. VELCADE (BORTEZOMIB) [Concomitant]
  3. LIVALO (ITAVASTATIN CALCIUM) (TABLETS) [Concomitant]
  4. DEXAMETHASONE (DEXAMETHASONE) [Concomitant]
  5. COUMADIN (WARFARIN SODIUM) [Concomitant]
  6. CARDIZEM (DILTIAZEM HYDROCHLORIDE) [Concomitant]
  7. METFORMIN HCL (METFORMIN HYDROCHLORIDE) [Concomitant]
  8. LISINOPRIL (LISINOPRIL) [Concomitant]
  9. PRILOSEC (OMEPRAZOLE) [Concomitant]
  10. METOPROLOL TARTRATE (METOPROLOL TARTRATE) [Concomitant]

REACTIONS (3)
  - Dyspnoea [None]
  - Burning sensation [None]
  - Oedema peripheral [None]
